FAERS Safety Report 20828875 (Version 1)
Quarter: 2022Q2

REPORT INFORMATION
  Report Type: Spontaneous
  Country: US (occurrence: US)
  Receive Date: 20220513
  Receipt Date: 20220513
  Transmission Date: 20220720
  Serious: No
  Sender: FDA-Public Use
  Company Number: US-SA-SAC20220510000539

PATIENT
  Age: 60 Year
  Sex: Female

DRUGS (1)
  1. DUPIXENT [Suspect]
     Active Substance: DUPILUMAB
     Dosage: 300 MG QOW
     Route: 058

REACTIONS (6)
  - Injection site rash [Recovered/Resolved]
  - Abdominal pain upper [Recovered/Resolved]
  - Cough [Recovered/Resolved]
  - Dysania [Recovered/Resolved]
  - Product use in unapproved indication [Unknown]
  - Product prescribing issue [Unknown]
